FAERS Safety Report 21661359 (Version 1)
Quarter: 2022Q4

REPORT INFORMATION
  Report Type: Report from Study
  Country: CA (occurrence: CA)
  Receive Date: 20221130
  Receipt Date: 20221130
  Transmission Date: 20230112
  Serious: Yes (Other)
  Sender: FDA-Public Use
  Company Number: CA-JNJFOC-20221152217

PATIENT
  Sex: Female
  Weight: 52 kg

DRUGS (1)
  1. REMICADE [Suspect]
     Active Substance: INFLIXIMAB
     Indication: Crohn^s disease
     Dosage: THE PATIENT WAS INFUSED ON 22-NOV-2022
     Route: 042

REACTIONS (7)
  - Skin irritation [Not Recovered/Not Resolved]
  - Dysuria [Unknown]
  - Skin discharge [Unknown]
  - Peripheral swelling [Unknown]
  - Skin fissures [Unknown]
  - Dry skin [Unknown]
  - Off label use [Unknown]
